FAERS Safety Report 8245948-5 (Version None)
Quarter: 2012Q1

REPORT INFORMATION
  Report Type: 
  Country: None (occurrence: None)
  Receive Date: 20120330
  Receipt Date: 20120327
  Transmission Date: 20120608
  Serious: No
  Sender: FDA-Public Use
  Company Number: US-PFIZER INC-2012078780

PATIENT
  Sex: Male
  Weight: 88.435 kg

DRUGS (5)
  1. LISINOPRIL [Concomitant]
     Dosage: UNK
  2. PRAVACHOL [Concomitant]
     Dosage: UNK
  3. DILTIAZEM [Concomitant]
     Dosage: UNK
  4. ALLOPURINOL [Concomitant]
     Dosage: UNK
  5. CELEBREX [Suspect]
     Indication: PROCEDURAL PAIN
     Dosage: 50 MG, 2X/DAY
     Route: 048
     Dates: start: 20120123, end: 20120320

REACTIONS (2)
  - SOMNOLENCE [None]
  - DIZZINESS [None]
